FAERS Safety Report 7720215-4 (Version None)
Quarter: 2011Q3

REPORT INFORMATION
  Report Type: 
  Country: None (occurrence: None)
  Receive Date: 20110825
  Receipt Date: 20110815
  Transmission Date: 20111222
  Serious: Yes (Other)
  Sender: FDA-Public Use
  Company Number: 2011MA012146

PATIENT
  Age: 34 Year
  Sex: Male

DRUGS (3)
  1. CLONAZEPAM [Suspect]
  2. SUBUTEX [Concomitant]
  3. GABAPENTIN [Suspect]

REACTIONS (3)
  - MENTAL IMPAIRMENT [None]
  - LEARNING DISORDER [None]
  - OVERDOSE [None]
